FAERS Safety Report 17256599 (Version 3)
Quarter: 2020Q2

REPORT INFORMATION
  Report Type: Report from Study
  Country: BR (occurrence: BR)
  Receive Date: 20200110
  Receipt Date: 20200514
  Transmission Date: 20200713
  Serious: Yes (Other)
  Sender: FDA-Public Use
  Company Number: BR-SA-2020SA001974

PATIENT
  Sex: Female
  Weight: 68 kg

DRUGS (1)
  1. AGALSIDASE BETA [Suspect]
     Active Substance: AGALSIDASE BETA
     Indication: FABRY^S DISEASE
     Dosage: UNK; QOW (ONCE EVERY 15 DAYS)
     Route: 041
     Dates: start: 20191128

REACTIONS (5)
  - Malaise [Recovering/Resolving]
  - Intracranial mass [Recovered/Resolved]
  - Dizziness [Recovering/Resolving]
  - Syncope [Recovering/Resolving]
  - Asthenia [Recovering/Resolving]
